FAERS Safety Report 7196583-1 (Version None)
Quarter: 2010Q4

REPORT INFORMATION
  Report Type: 
  Country: None (occurrence: None)
  Receive Date: 20101223
  Receipt Date: 20101027
  Transmission Date: 20110411
  Serious: No
  Sender: FDA-Public Use
  Company Number: US-AMGEN-USASP2010003050

PATIENT

DRUGS (10)
  1. ENBREL [Suspect]
     Indication: PRODUCT USED FOR UNKNOWN INDICATION
     Dosage: 50 MG, QWK
     Route: 058
  2. METHOTREXATE [Concomitant]
  3. TYLENOL (CAPLET) [Concomitant]
  4. PREMARIN [Concomitant]
     Dosage: 0.625 MG, UNK
  5. ATENOLOL [Concomitant]
     Dosage: 50 MG, UNK
  6. CLINDAMYCIN [Concomitant]
     Dosage: 150 MG, UNK
  7. LORAZEPAM [Concomitant]
     Dosage: 1 MG, UNK
  8. OMEPRAZOLE [Concomitant]
     Dosage: 10 MG, UNK
  9. VENTOLIN [Concomitant]
  10. LEXAPRO [Concomitant]
     Dosage: 5 MG, UNK

REACTIONS (2)
  - DIARRHOEA [None]
  - NAUSEA [None]
